FAERS Safety Report 12477413 (Version 2)
Quarter: 2016Q3

REPORT INFORMATION
  Report Type: Spontaneous
  Country: US (occurrence: US)
  Receive Date: 20160617
  Receipt Date: 20160826
  Transmission Date: 20161109
  Serious: Yes (Death, Other)
  Sender: FDA-Public Use
  Company Number: US-JNJFOC-20160611134

PATIENT

DRUGS (1)
  1. XARELTO [Suspect]
     Active Substance: RIVAROXABAN
     Indication: PRODUCT USED FOR UNKNOWN INDICATION
     Route: 048

REACTIONS (9)
  - Cerebral haemorrhage [Unknown]
  - Haemorrhagic stroke [Unknown]
  - Internal haemorrhage [Unknown]
  - Ischaemic stroke [Unknown]
  - Death [Fatal]
  - Gastrointestinal haemorrhage [Unknown]
  - Respiratory failure [Unknown]
  - Epistaxis [Unknown]
  - Renal haemorrhage [Unknown]
